FAERS Safety Report 18757549 (Version 1)
Quarter: 2021Q1

REPORT INFORMATION
  Report Type: Other
  Country: US (occurrence: US)
  Receive Date: 20210119
  Receipt Date: 20210119
  Transmission Date: 20210419
  Serious: No
  Sender: FDA-Public Use
  Company Number: US-NOVA LABORATORIES LIMITED-2105537

PATIENT
  Age: 64 Year
  Sex: Male

DRUGS (10)
  1. VINCRISTINE [Concomitant]
     Active Substance: VINCRISTINE
  2. PURIXAN [Suspect]
     Active Substance: MERCAPTOPURINE
     Indication: B-CELL TYPE ACUTE LEUKAEMIA
  3. VINCRISTINE [Suspect]
     Active Substance: VINCRISTINE
  4. PREDNISONE. [Suspect]
     Active Substance: PREDNISONE
  5. CYTARABINE. [Concomitant]
     Active Substance: CYTARABINE
  6. METHOTREXATE. [Suspect]
     Active Substance: METHOTREXATE
  7. DEXAMETHASONE. [Concomitant]
     Active Substance: DEXAMETHASONE
  8. CYCLOPHOSPHAMIDE. [Concomitant]
     Active Substance: CYCLOPHOSPHAMIDE
  9. DOXORUBICIN [Concomitant]
     Active Substance: DOXORUBICIN
  10. METHOTREXATE. [Concomitant]
     Active Substance: METHOTREXATE

REACTIONS (2)
  - Pancytopenia [Unknown]
  - Off label use [None]
